FAERS Safety Report 8913140 (Version 1)
Quarter: 2012Q4

REPORT INFORMATION
  Report Type: Report from Study
  Country: CA (occurrence: CA)
  Receive Date: 20121119
  Receipt Date: 20121119
  Transmission Date: 20130627
  Serious: Yes (Other)
  Sender: FDA-Public Use
  Company Number: CA-JNJFOC-20121106697

PATIENT
  Sex: Male
  Weight: 95.9 kg

DRUGS (6)
  1. REMICADE [Suspect]
     Indication: COLITIS ULCERATIVE
     Route: 042
  2. REMICADE [Suspect]
     Indication: COLITIS ULCERATIVE
     Route: 042
     Dates: start: 20120921
  3. COLACE [Concomitant]
     Route: 065
  4. PARIET [Concomitant]
     Route: 065
  5. OXYCOCET [Concomitant]
     Route: 065
  6. ENTOCORT [Concomitant]
     Route: 065

REACTIONS (1)
  - Rectal haemorrhage [Recovered/Resolved]
